FAERS Safety Report 9589983 (Version 2)
Quarter: 2013Q4

REPORT INFORMATION
  Report Type: Spontaneous
  Country: US (occurrence: US)
  Receive Date: 20131003
  Receipt Date: 20131003
  Transmission Date: 20140711
  Serious: No
  Sender: FDA-Public Use
  Company Number: US-AMGEN-USASP2012069400

PATIENT
  Sex: Female
  Weight: 209 kg

DRUGS (9)
  1. ENBREL [Suspect]
     Indication: RHEUMATOID ARTHRITIS
     Dosage: 25 TO 50 MG SC WEEKLY OR TWICE WEEKLY
     Route: 058
     Dates: start: 200705
  2. ASPIRIN LOW [Concomitant]
     Dosage: 81 MG, UNK, EC
  3. SIMVASTATIN [Concomitant]
     Dosage: 20 MG, UNK
  4. TOPROL [Concomitant]
     Dosage: 50 MG, UNK
  5. LEFLUNOMIDE [Concomitant]
     Dosage: 10 MG, DAILY
     Route: 058
     Dates: start: 2007
  6. NAPROXEN [Concomitant]
     Dosage: UNK
  7. FOLIC ACID [Concomitant]
     Dosage: UNK
  8. PROTONIX [Concomitant]
     Dosage: 40 MG, UNK
  9. CLOBETASOL 0.05% [Concomitant]
     Dosage: UNK

REACTIONS (1)
  - Psoriasis [Not Recovered/Not Resolved]
